FAERS Safety Report 23237289 (Version 2)
Quarter: 2024Q1

REPORT INFORMATION
  Report Type: Report from Study
  Country: US (occurrence: US)
  Receive Date: 20231128
  Receipt Date: 20240105
  Transmission Date: 20240410
  Serious: No
  Sender: FDA-Public Use
  Company Number: US-ACADIA PHARMACEUTICALS INC.-ACA-2023-PIM-005074

PATIENT
  Age: 82 Year
  Sex: Male

DRUGS (11)
  1. NUPLAZID [Suspect]
     Active Substance: PIMAVANSERIN TARTRATE
     Indication: Parkinson^s disease
     Dosage: 34 MILLIGRAM, QD
     Route: 048
     Dates: start: 20230801
  2. NUPLAZID [Suspect]
     Active Substance: PIMAVANSERIN TARTRATE
     Dosage: DOSE INCREASED FROM 34 MG DAILY TO 34 MG DAILY+34 MG EVERY OTHER DAY; MWF
     Route: 048
  3. NOURIANZ [Concomitant]
     Active Substance: ISTRADEFYLLINE
  4. METOPROLOL [Concomitant]
     Active Substance: METOPROLOL
  5. RIVASTIGMINE [Concomitant]
     Active Substance: RIVASTIGMINE
  6. LUMIGAN [Concomitant]
     Active Substance: BIMATOPROST
  7. LIPITOR [Concomitant]
     Active Substance: ATORVASTATIN CALCIUM
  8. MYRBETRIQ [Concomitant]
     Active Substance: MIRABEGRON
  9. VITAMIN B COMPLEX [Concomitant]
     Active Substance: CYANOCOBALAMIN\DEXPANTHENOL\NIACINAMIDE\PYRIDOXINE HYDROCHLORIDE\RIBOFLAVIN 5^-PHOSPHATE SODIUM\THIA
  10. RASAGILINE [Concomitant]
     Active Substance: RASAGILINE
  11. RYTARY [Concomitant]
     Active Substance: CARBIDOPA\LEVODOPA

REACTIONS (3)
  - Inappropriate schedule of product administration [Unknown]
  - Oropharyngeal pain [Recovered/Resolved]
  - Chest pain [Recovered/Resolved]

NARRATIVE: CASE EVENT DATE: 20231010
